FAERS Safety Report 8600134-1 (Version None)
Quarter: 2012Q3

REPORT INFORMATION
  Report Type: 
  Country: None (occurrence: None)
  Receive Date: 20120817
  Receipt Date: 20120808
  Transmission Date: 20120928
  Serious: Yes (Other)
  Sender: FDA-Public Use
  Company Number: BR-AMGEN-BRASP2012051454

PATIENT
  Age: 70 Year
  Sex: Female
  Weight: 72 kg

DRUGS (6)
  1. ENBREL [Suspect]
     Indication: RHEUMATOID ARTHRITIS
     Dosage: 50 MG, ONCE WEEKLY
     Route: 058
     Dates: start: 20120201, end: 20120801
  2. VASOPRIL                           /00574902/ [Concomitant]
     Dosage: UNK
  3. VASLIP                             /01341302/ [Concomitant]
     Dosage: UNK
  4. PREDNISONE TAB [Concomitant]
     Dosage: UNK
  5. FOLIC ACID [Concomitant]
     Dosage: UNK
  6. PROPRANOLOL [Concomitant]
     Dosage: UNK

REACTIONS (5)
  - INFLUENZA [None]
  - INFECTION PARASITIC [None]
  - WEIGHT DECREASED [None]
  - SECRETION DISCHARGE [None]
  - COUGH [None]
